FAERS Safety Report 8871737 (Version 1)
Quarter: 2012Q4

REPORT INFORMATION
  Report Type: 
  Country: US (occurrence: US)
  Receive Date: 20121026
  Receipt Date: 20121026
  Transmission Date: 20130627
  Serious: No
  Sender: FDA-Public Use
  Company Number: US-AMGEN-USASP2012048683

PATIENT
  Sex: Female

DRUGS (5)
  1. ENBREL [Suspect]
     Indication: PRODUCT USED FOR UNKNOWN INDICATION
     Dosage: 50 mg, qwk
     Route: 058
  2. WELLBUTRIN [Concomitant]
     Dosage: 100 mg, UNK
  3. FISH OIL [Concomitant]
     Dosage: UNK
  4. CALCIUM 600 + D [Concomitant]
     Dosage: UNK
  5. MULTIVITAMIN                       /00097801/ [Concomitant]
     Dosage: UNK

REACTIONS (2)
  - Laceration [Unknown]
  - Wound infection [Unknown]
